FAERS Safety Report 23314321 (Version 1)
Quarter: 2023Q4

REPORT INFORMATION
  Report Type: Spontaneous
  Country: CN (occurrence: CN)
  Receive Date: 20231219
  Receipt Date: 20231219
  Transmission Date: 20240109
  Serious: Yes (Death, Other)
  Sender: FDA-Public Use
  Company Number: CN-OTSUKA-2023_032828

PATIENT

DRUGS (1)
  1. DACOGEN [Suspect]
     Active Substance: DECITABINE
     Indication: Acute myeloid leukaemia
     Dosage: 10 CONSECUTIVE DAYS IN 28-DAY CYCLES FOR A TOTAL OF SIX CYCLES (6 MG/M2)
     Route: 065

REACTIONS (10)
  - Nervous system disorder [Unknown]
  - Gastrointestinal disorder [Unknown]
  - Cardiovascular disorder [Unknown]
  - Cerebral haemorrhage [Fatal]
  - Infection [Fatal]
  - Leukopenia [Unknown]
  - Thrombocytopenia [Unknown]
  - Neutropenia [Unknown]
  - Anaemia [Unknown]
  - Treatment failure [Unknown]
